FAERS Safety Report 13319672 (Version 1)
Quarter: 2017Q1

REPORT INFORMATION
  Report Type: Spontaneous
  Country: US (occurrence: US)
  Receive Date: 20170309
  Receipt Date: 20170309
  Transmission Date: 20170428
  Serious: No
  Sender: FDA-Public Use
  Company Number: None

PATIENT
  Age: 65 Year
  Sex: Female

DRUGS (6)
  1. MILK THISTLE [Concomitant]
     Active Substance: MILK THISTLE
  2. URSODIOL. [Concomitant]
     Active Substance: URSODIOL
  3. RANITIDINE. [Concomitant]
     Active Substance: RANITIDINE
  4. OCALIVA [Suspect]
     Active Substance: OBETICHOLIC ACID
     Indication: RHEUMATOID ARTHRITIS
     Route: 048
     Dates: start: 20170208
  5. HYDROXYZ DOCUSATE [Concomitant]
  6. MOMETASONE [Concomitant]
     Active Substance: MOMETASONE

REACTIONS (3)
  - Nausea [None]
  - Pruritus [None]
  - Dizziness [None]

NARRATIVE: CASE EVENT DATE: 20170210
